FAERS Safety Report 14490043 (Version 3)
Quarter: 2024Q1

REPORT INFORMATION
  Report Type: Report from Study
  Country: JP (occurrence: JP)
  Receive Date: 20180206
  Receipt Date: 20240213
  Transmission Date: 20240410
  Serious: Yes (Other)
  Sender: FDA-Public Use
  Company Number: JP-KYOWAKIRIN-2016JPN-NSP000392

PATIENT
  Age: 74 Year
  Sex: Female

DRUGS (90)
  1. DARBEPOETIN ALFA [Suspect]
     Active Substance: DARBEPOETIN ALFA
     Indication: Myelodysplastic syndrome
     Dosage: 240 MICROGRAM, QWK
     Route: 058
     Dates: start: 20150224, end: 20150331
  2. DARBEPOETIN ALFA [Suspect]
     Active Substance: DARBEPOETIN ALFA
     Dosage: 120 MICROGRAM, QWK
     Route: 058
     Dates: start: 20150407, end: 20150428
  3. DARBEPOETIN ALFA [Suspect]
     Active Substance: DARBEPOETIN ALFA
     Dosage: 120 MICROGRAM, QWK
     Route: 058
     Dates: start: 20150512, end: 20150818
  4. DARBEPOETIN ALFA [Suspect]
     Active Substance: DARBEPOETIN ALFA
     Dosage: 60 MICROGRAM, QWK
     Route: 058
     Dates: start: 20150825, end: 20150915
  5. DARBEPOETIN ALFA [Suspect]
     Active Substance: DARBEPOETIN ALFA
     Dosage: 60 MICROGRAM, QWK
     Route: 058
     Dates: start: 20150929, end: 20151102
  6. DARBEPOETIN ALFA [Suspect]
     Active Substance: DARBEPOETIN ALFA
     Dosage: 120 MICROGRAM, Q2WK
     Route: 058
     Dates: start: 20151110, end: 20160329
  7. DARBEPOETIN ALFA [Suspect]
     Active Substance: DARBEPOETIN ALFA
     Dosage: 120 MICROGRAM
     Route: 058
     Dates: start: 20160405, end: 20160405
  8. DARBEPOETIN ALFA [Suspect]
     Active Substance: DARBEPOETIN ALFA
     Dosage: 120 MICROGRAM, Q2WK
     Route: 058
     Dates: start: 20160426, end: 20161206
  9. DARBEPOETIN ALFA [Suspect]
     Active Substance: DARBEPOETIN ALFA
     Dosage: 120 MICROGRAM, Q2WK
     Route: 058
     Dates: start: 20161213, end: 20161227
  10. DARBEPOETIN ALFA [Suspect]
     Active Substance: DARBEPOETIN ALFA
     Dosage: 120 MICROGRAM, QWK
     Route: 058
     Dates: start: 20170117, end: 20170124
  11. DARBEPOETIN ALFA [Suspect]
     Active Substance: DARBEPOETIN ALFA
     Dosage: 120 MICROGRAM, Q2WK
     Route: 058
     Dates: start: 20170214, end: 20170704
  12. DARBEPOETIN ALFA [Suspect]
     Active Substance: DARBEPOETIN ALFA
     Dosage: 120 MICROGRAM, Q2WK
     Route: 058
     Dates: start: 20170711, end: 20170905
  13. DARBEPOETIN ALFA [Suspect]
     Active Substance: DARBEPOETIN ALFA
     Dosage: 120 MICROGRAM, Q2WK
     Route: 058
     Dates: start: 20170926, end: 20180227
  14. DARBEPOETIN ALFA [Suspect]
     Active Substance: DARBEPOETIN ALFA
     Dosage: 90 MICROGRAM, Q2WK
     Route: 058
     Dates: start: 20180313, end: 20180508
  15. DARBEPOETIN ALFA [Suspect]
     Active Substance: DARBEPOETIN ALFA
     Dosage: 90 MICROGRAM, Q3WK
     Route: 058
     Dates: start: 20180529, end: 20180619
  16. DARBEPOETIN ALFA [Suspect]
     Active Substance: DARBEPOETIN ALFA
     Dosage: 90 MICROGRAM, Q3WK
     Route: 058
     Dates: start: 20180703, end: 20180724
  17. DARBEPOETIN ALFA [Suspect]
     Active Substance: DARBEPOETIN ALFA
     Dosage: 90 MICROGRAM, Q2WK
     Route: 058
     Dates: start: 20180807, end: 20180918
  18. DARBEPOETIN ALFA [Suspect]
     Active Substance: DARBEPOETIN ALFA
     Dosage: 90 MICROGRAM, Q3WK
     Route: 058
     Dates: start: 20181009, end: 20181211
  19. DARBEPOETIN ALFA [Suspect]
     Active Substance: DARBEPOETIN ALFA
     Dosage: 90 MICROGRAM, Q3WK
     Route: 058
     Dates: start: 20181225, end: 20190226
  20. DARBEPOETIN ALFA [Suspect]
     Active Substance: DARBEPOETIN ALFA
     Dosage: 90 MICROGRAM, Q2WK
     Route: 058
     Dates: start: 20190326, end: 20190423
  21. DARBEPOETIN ALFA [Suspect]
     Active Substance: DARBEPOETIN ALFA
     Dosage: 90 MICROGRAM, Q4WK
     Route: 058
     Dates: start: 20190521, end: 20190813
  22. DARBEPOETIN ALFA [Suspect]
     Active Substance: DARBEPOETIN ALFA
     Dosage: 90 MICROGRAM, Q4WK
     Route: 058
     Dates: start: 20190917
  23. RITUXIMAB [Suspect]
     Active Substance: RITUXIMAB
     Indication: Lymphoma
     Dosage: UNK
     Route: 041
  24. RITUXIMAB [Suspect]
     Active Substance: RITUXIMAB
     Dosage: UNK
     Route: 041
  25. CYCLOPHOSPHAMIDE [Suspect]
     Active Substance: CYCLOPHOSPHAMIDE
     Indication: Lymphoma
     Dosage: UNK
     Route: 041
  26. DOXORUBICIN HYDROCHLORIDE [Suspect]
     Active Substance: DOXORUBICIN HYDROCHLORIDE
     Indication: Lymphoma
     Dosage: UNK
     Route: 041
  27. VINCRISTINE SULFATE [Suspect]
     Active Substance: VINCRISTINE SULFATE
     Indication: Lymphoma
     Dosage: UNK
     Route: 041
  28. PREDNISOLONE [Suspect]
     Active Substance: PREDNISOLONE
     Indication: Lymphoma
     Dosage: UNK
     Route: 048
  29. FLUDARABINE PHOSPHATE [Suspect]
     Active Substance: FLUDARABINE PHOSPHATE
     Indication: Lymphoma
     Dosage: UNK
     Route: 065
  30. ZEVALIN [Suspect]
     Active Substance: IBRITUMOMAB TIUXETAN
     Indication: Lymphoma
     Dosage: UNK
     Route: 042
  31. BENDAMUSTINE HYDROCHLORIDE [Suspect]
     Active Substance: BENDAMUSTINE HYDROCHLORIDE
     Indication: Lymphoma
     Dosage: UNK
     Route: 041
  32. GEMCITABINE HYDROCHLORIDE [Suspect]
     Active Substance: GEMCITABINE HYDROCHLORIDE
     Indication: Lymphoma
     Dosage: UNK
     Route: 041
  33. CARBOPLATIN [Suspect]
     Active Substance: CARBOPLATIN
     Indication: Lymphoma
     Dosage: UNK
     Route: 041
  34. DEXAMETHASONE [Suspect]
     Active Substance: DEXAMETHASONE
     Indication: Lymphoma
     Dosage: UNK
     Route: 065
  35. ALLELOCK [Concomitant]
     Active Substance: OLOPATADINE HYDROCHLORIDE
     Indication: Rhinitis allergic
     Dosage: 5 MILLIGRAM
     Route: 048
     Dates: start: 20150224, end: 20150302
  36. RABEPRAZOLE SODIUM [Concomitant]
     Active Substance: RABEPRAZOLE SODIUM
     Indication: Gastrooesophageal reflux disease
     Dosage: 10 MILLIGRAM
     Route: 048
  37. REBAMIPIDE [Concomitant]
     Active Substance: REBAMIPIDE
     Indication: Chronic gastritis
     Dosage: 300 MILLIGRAM
     Route: 048
     Dates: end: 20180918
  38. FEBUXOSTAT [Concomitant]
     Active Substance: FEBUXOSTAT
     Indication: Hyperuricaemia
     Dosage: 10 MILLIGRAM
     Route: 048
  39. FUROSEMIDE [Concomitant]
     Active Substance: FUROSEMIDE
     Indication: Cardiac failure
     Dosage: 10 MILLIGRAM
     Route: 048
  40. LOSARTAN POTASSIUM [Concomitant]
     Active Substance: LOSARTAN POTASSIUM
     Indication: Hypertension
     Dosage: 50 MILLIGRAM
     Route: 048
  41. EXJADE [Concomitant]
     Active Substance: DEFERASIROX
     Indication: Iron overload
     Dosage: 375 MILLIGRAM
     Route: 048
     Dates: end: 20150421
  42. MENATETRENONE [Concomitant]
     Active Substance: MENATETRENONE
     Indication: Myelodysplastic syndrome
     Dosage: 45 MILLIGRAM
     Route: 048
  43. ALFACALCIDOL [Concomitant]
     Active Substance: ALFACALCIDOL
     Indication: Myelodysplastic syndrome
     Dosage: 1 MICROGRAM
     Route: 048
  44. HERBALS [Concomitant]
     Active Substance: HERBALS
     Indication: Myelodysplastic syndrome
     Dosage: 7.5 GRAM
     Route: 048
     Dates: end: 20150602
  45. LEVOCARNITINE HYDROCHLORIDE [Concomitant]
     Active Substance: LEVOCARNITINE HYDROCHLORIDE
     Indication: Myelodysplastic syndrome
     Dosage: 1800 MILLIGRAM
     Route: 048
     Dates: end: 20160719
  46. LEVOFLOXACIN HEMIHYDRATE [Concomitant]
     Active Substance: LEVOFLOXACIN
     Indication: Tonsillitis
     Dosage: 500 MILLIGRAM
     Route: 048
     Dates: start: 20150224, end: 20150302
  47. LEVOFLOXACIN HEMIHYDRATE [Concomitant]
     Active Substance: LEVOFLOXACIN
     Dosage: 500 MILLIGRAM
     Route: 048
     Dates: start: 20150512, end: 20150519
  48. LEVOFLOXACIN HEMIHYDRATE [Concomitant]
     Active Substance: LEVOFLOXACIN
     Dosage: UNK
     Route: 048
     Dates: start: 20160426, end: 20160501
  49. LEVOFLOXACIN HEMIHYDRATE [Concomitant]
     Active Substance: LEVOFLOXACIN
     Dosage: UNK
     Route: 048
     Dates: start: 20160607, end: 20160614
  50. LEVOFLOXACIN HEMIHYDRATE [Concomitant]
     Active Substance: LEVOFLOXACIN
     Dosage: UNK
     Route: 048
     Dates: start: 20170131, end: 20170207
  51. DEXCHLORPHENIRAMINE MALEATE [Concomitant]
     Active Substance: DEXCHLORPHENIRAMINE MALEATE
     Indication: Rhinitis allergic
     Dosage: 12 MILLIGRAM
     Route: 048
     Dates: start: 20150224, end: 20150302
  52. Sp [Concomitant]
     Indication: Tonsillitis
     Dosage: 1 MILLIGRAM
     Route: 049
     Dates: start: 20150224, end: 20150302
  53. Sp [Concomitant]
     Dosage: UNK
     Route: 049
     Dates: start: 20150818, end: 201509
  54. ISODINE [Concomitant]
     Active Substance: POVIDONE-IODINE
     Indication: Tonsillitis
     Dosage: UNK
     Route: 049
     Dates: start: 20150224, end: 20150302
  55. ISODINE [Concomitant]
     Active Substance: POVIDONE-IODINE
     Indication: Prophylaxis
     Dosage: UNK SOMETIMES
     Route: 049
     Dates: start: 20151222, end: 20160719
  56. Cefzon [Concomitant]
     Indication: Skin infection
     Dosage: 300 MILLIGRAM
     Route: 048
     Dates: start: 20150226, end: 20150302
  57. CEPHARANTHINE [Concomitant]
     Active Substance: CEPHARANTHINE
     Indication: Myelodysplastic syndrome
     Dosage: 1 MILLIGRAM
     Route: 048
     Dates: start: 20150421, end: 20160719
  58. Vasolan [Concomitant]
     Indication: Atrial fibrillation
     Dosage: UNK
     Route: 048
  59. CIFENLINE [Concomitant]
     Active Substance: CIFENLINE
     Indication: Atrial fibrillation
     Dosage: UNK
     Route: 048
  60. BISOPROLOL FUMARATE [Concomitant]
     Active Substance: BISOPROLOL FUMARATE
     Indication: Atrial fibrillation
     Dosage: UNK
     Route: 048
     Dates: end: 20150714
  61. DIGOXIN [Concomitant]
     Active Substance: DIGOXIN
     Indication: Atrial fibrillation
     Dosage: UNK
     Route: 048
     Dates: start: 20150714
  62. Azunol [Concomitant]
     Indication: Prophylaxis
     Dosage: UNK
     Route: 049
     Dates: start: 20151222
  63. BARACLUDE [Concomitant]
     Active Substance: ENTECAVIR
     Dosage: UNK
     Route: 048
     Dates: start: 20150512, end: 20160426
  64. BROMISOVAL\DIHYDROCODEINE PHOSPHATE\DYPHYLLINE\METHYLEPHEDRINE HYDROCH [Concomitant]
     Active Substance: BROMISOVAL\DIHYDROCODEINE PHOSPHATE\DYPHYLLINE\METHYLEPHEDRINE HYDROCHLORIDE, (+/-)-
     Indication: Bronchitis
     Dosage: 3 DOSAGE FORM
     Route: 048
     Dates: start: 20150512, end: 20150714
  65. BROMISOVAL\DIHYDROCODEINE PHOSPHATE\DYPHYLLINE\METHYLEPHEDRINE HYDROCH [Concomitant]
     Active Substance: BROMISOVAL\DIHYDROCODEINE PHOSPHATE\DYPHYLLINE\METHYLEPHEDRINE HYDROCHLORIDE, (+/-)-
     Indication: Upper respiratory tract inflammation
     Dosage: UNK
     Route: 048
     Dates: start: 20160105, end: 20160110
  66. BROMISOVAL\DIHYDROCODEINE PHOSPHATE\DYPHYLLINE\METHYLEPHEDRINE HYDROCH [Concomitant]
     Active Substance: BROMISOVAL\DIHYDROCODEINE PHOSPHATE\DYPHYLLINE\METHYLEPHEDRINE HYDROCHLORIDE, (+/-)-
     Dosage: UNK
     Route: 048
     Dates: start: 20160301, end: 20160306
  67. CARBOCYSTEINE [Concomitant]
     Active Substance: CARBOCYSTEINE
     Dosage: 1500 MILLIGRAM
     Route: 048
     Dates: start: 20150512, end: 20150714
  68. FLUTICASONE FUROATE\VILANTEROL TRIFENATATE [Concomitant]
     Active Substance: FLUTICASONE FUROATE\VILANTEROL TRIFENATATE
     Dosage: UNK
     Route: 055
     Dates: start: 20150526, end: 201606
  69. Talion [Concomitant]
     Dosage: 20 MILLIGRAM
     Route: 048
     Dates: start: 20150526, end: 20150714
  70. CLARITHROMYCIN [Concomitant]
     Active Substance: CLARITHROMYCIN
     Dosage: 400 MILLIGRAM
     Route: 048
     Dates: start: 20150601, end: 20150714
  71. CLARITHROMYCIN [Concomitant]
     Active Substance: CLARITHROMYCIN
     Dosage: 400 MILLIGRAM
     Route: 048
     Dates: start: 20170404, end: 20170409
  72. METEBANYL [Concomitant]
     Dosage: UNK, PRN
     Route: 048
     Dates: start: 20150602, end: 201507
  73. FLUTICASONE FUROATE [Concomitant]
     Active Substance: FLUTICASONE FUROATE
     Dosage: UNK
     Route: 045
     Dates: start: 20150623, end: 201507
  74. FLUTICASONE FUROATE [Concomitant]
     Active Substance: FLUTICASONE FUROATE
     Dosage: 55 MICROGRAM
     Route: 045
     Dates: start: 20170418, end: 20170508
  75. Depas [Concomitant]
     Dosage: UNK, AS NECESSARY
     Route: 048
     Dates: start: 20151208
  76. AMBROXOL HYDROCHLORIDE [Concomitant]
     Active Substance: AMBROXOL HYDROCHLORIDE
     Indication: Bronchitis
     Dosage: UNK
     Route: 048
     Dates: start: 20160105, end: 20160110
  77. AMBROXOL HYDROCHLORIDE [Concomitant]
     Active Substance: AMBROXOL HYDROCHLORIDE
     Indication: Upper respiratory tract inflammation
     Dosage: UNK
     Route: 048
     Dates: start: 20160301, end: 20160306
  78. AMBROXOL HYDROCHLORIDE [Concomitant]
     Active Substance: AMBROXOL HYDROCHLORIDE
     Dosage: 45 MILLIGRAM
     Route: 048
     Dates: start: 20170411, end: 20170417
  79. DEXTROMETHORPHAN HYDROBROMIDE [Concomitant]
     Active Substance: DEXTROMETHORPHAN HYDROBROMIDE
     Dosage: UNK
     Route: 048
     Dates: start: 20160426, end: 20160501
  80. DEXTROMETHORPHAN HYDROBROMIDE [Concomitant]
     Active Substance: DEXTROMETHORPHAN HYDROBROMIDE
     Dosage: UNK
     Route: 048
     Dates: start: 20160607, end: 20160614
  81. BETAHISTINE MESILATE [Concomitant]
     Active Substance: BETAHISTINE MESILATE
     Dosage: UNK
     Route: 048
     Dates: start: 20160927, end: 20161010
  82. AMPHOTERICIN B [Concomitant]
     Active Substance: AMPHOTERICIN B
     Dosage: UNK
     Route: 048
     Dates: start: 20160315, end: 20160719
  83. TULOBUTEROL [Concomitant]
     Active Substance: TULOBUTEROL
     Dosage: 2 MILLIGRAM
     Dates: start: 20170411, end: 20170417
  84. CARBOCYSTEINE [Concomitant]
     Active Substance: CARBOCYSTEINE
     Dosage: 1500 MILLIGRAM
     Route: 048
     Dates: start: 20170404, end: 20170508
  85. MONTELUKAST [Concomitant]
     Active Substance: MONTELUKAST SODIUM
     Dosage: 10 MILLIGRAM
     Route: 048
     Dates: start: 20170404, end: 20170417
  86. FEXOFENADINE [Concomitant]
     Active Substance: FEXOFENADINE HYDROCHLORIDE
     Dosage: 120 MILLIGRAM
     Route: 048
     Dates: start: 20170404, end: 20170417
  87. Flomox [Concomitant]
     Dosage: 300 MILLIGRAM
     Route: 048
     Dates: start: 20170418, end: 20170422
  88. TRANEXAMIC ACID [Concomitant]
     Active Substance: TRANEXAMIC ACID
     Dosage: 750 MILLIGRAM
     Route: 048
     Dates: start: 20170418, end: 20170508
  89. OLOPATADINE HYDROCHLORIDE [Concomitant]
     Active Substance: OLOPATADINE HYDROCHLORIDE
     Dosage: UNK
     Route: 048
     Dates: start: 20160426, end: 20160501
  90. OLOPATADINE HYDROCHLORIDE [Concomitant]
     Active Substance: OLOPATADINE HYDROCHLORIDE
     Dosage: UNK
     Route: 048
     Dates: start: 20160607, end: 20160614

REACTIONS (13)
  - Rhinitis allergic [Recovering/Resolving]
  - Neurosis [Recovering/Resolving]
  - Bronchitis [Recovering/Resolving]
  - Hepatitis B reactivation [Recovering/Resolving]
  - Bronchitis [Recovering/Resolving]
  - Oral candidiasis [Recovering/Resolving]
  - Upper respiratory tract inflammation [Recovering/Resolving]
  - Upper respiratory tract inflammation [Recovering/Resolving]
  - Upper respiratory tract inflammation [Recovering/Resolving]
  - Vertigo positional [Recovered/Resolved]
  - Urinary tract infection [Recovering/Resolving]
  - Sinusitis [Recovered/Resolved]
  - Dizziness [Recovering/Resolving]

NARRATIVE: CASE EVENT DATE: 20150324
